FAERS Safety Report 17299338 (Version 1)
Quarter: 2020Q1

REPORT INFORMATION
  Report Type: Spontaneous
  Country: US (occurrence: US)
  Receive Date: 20200121
  Receipt Date: 20200121
  Transmission Date: 20200409
  Serious: Yes (Life-Threatening, Other)
  Sender: FDA-Public Use
  Company Number: None

PATIENT
  Age: 50 Week
  Sex: Female
  Weight: 65 kg

DRUGS (1)
  1. CLINDAMYCIN 500MG [Suspect]
     Active Substance: CLINDAMYCIN
     Indication: TOOTH EXTRACTION
     Dosage: ?          QUANTITY:25 CAPSULE(S);?
     Route: 048

REACTIONS (1)
  - Irritable bowel syndrome [None]

NARRATIVE: CASE EVENT DATE: 20181214
